FAERS Safety Report 8623876-0 (Version None)
Quarter: 2012Q3

REPORT INFORMATION
  Report Type: 
  Country: None (occurrence: None)
  Receive Date: 20120827
  Receipt Date: 20120815
  Transmission Date: 20120928
  Serious: Yes (Other)
  Sender: FDA-Public Use
  Company Number: JP-VERTEX PHARMACEUTICAL INC.-AE-2012-010054

PATIENT
  Age: 51 Year
  Sex: Male

DRUGS (9)
  1. RIBAVIRIN [Concomitant]
     Dosage: 600 MG, QD
     Route: 048
     Dates: start: 20120731
  2. FAMOTIDINE [Concomitant]
     Dosage: 40 MG, QD
     Route: 048
     Dates: start: 20120511
  3. POSTERISAN [Concomitant]
     Dosage: 2 G, PRN
     Route: 061
     Dates: start: 20120518
  4. VX-950 [Suspect]
     Indication: HEPATITIS C
     Dosage: 1500 MG, QD
     Route: 048
     Dates: start: 20120508
  5. PEGINTERFERON ALFA-2B [Concomitant]
     Dosage: 1.3 A?G/KG, UNK
     Route: 058
     Dates: start: 20120604
  6. RIBAVIRIN [Concomitant]
     Dosage: 400 MG, QD
     Route: 048
     Dates: start: 20120604, end: 20120730
  7. PEGINTERFERON ALFA-2B [Concomitant]
     Indication: HEPATITIS C
     Route: 058
     Dates: start: 20120508, end: 20120528
  8. POSTERISAN [Concomitant]
     Dosage: 2 G, QD
     Route: 061
  9. RIBAVIRIN [Concomitant]
     Indication: HEPATITIS C
     Dosage: 800 MG, QD
     Route: 048
     Dates: start: 20120508, end: 20120603

REACTIONS (1)
  - WHITE BLOOD CELL COUNT DECREASED [None]
